FAERS Safety Report 9678077 (Version 1)
Quarter: 2013Q4

REPORT INFORMATION
  Report Type: Spontaneous
  Country: US (occurrence: None)
  Receive Date: 20131107
  Receipt Date: 20131107
  Transmission Date: 20140711
  Serious: No
  Sender: FDA-Public Use
  Company Number: None

PATIENT
  Sex: 0

DRUGS (1)
  1. ONDANSETRON HCL [Suspect]
     Dosage: 4 MILLIGRAMS BOTTLE
     Dates: start: 201309, end: 20130930

REACTIONS (3)
  - No therapeutic response [None]
  - Product quality issue [None]
  - Product contamination [None]
